FAERS Safety Report 8777835 (Version 3)
Quarter: 2012Q4

REPORT INFORMATION
  Report Type: 
  Country: US (occurrence: US)
  Receive Date: 20120911
  Receipt Date: 20121030
  Transmission Date: 20130627
  Serious: Yes (Hospitalization, Disabling, Other)
  Sender: FDA-Public Use
  Company Number: PHEH2012US017493

PATIENT
  Age: 36 Year
  Sex: Female
  Weight: 115 kg

DRUGS (11)
  1. EXJADE [Suspect]
     Indication: SICKLE CELL ANAEMIA
     Dosage: 1000 mg daily
     Route: 048
     Dates: start: 20120525
  2. EXJADE [Suspect]
     Dosage: 500 mg daily
     Route: 048
  3. METHADONE [Concomitant]
     Dosage: 15 U, TID
     Route: 048
  4. LOVENOX [Concomitant]
  5. HYDROXYUREA [Concomitant]
  6. FOLIC ACID [Concomitant]
  7. WARFARIN [Concomitant]
  8. ALEVE [Concomitant]
  9. HYDREA [Concomitant]
     Indication: SICKLE CELL ANAEMIA WITH CRISIS
     Dosage: 500 U, BID
     Route: 048
  10. NORCO [Concomitant]
     Dosage: (10 U + 225 U)
     Route: 048
  11. PHENERGAN [Concomitant]
     Indication: NAUSEA
     Dosage: 25 g, UNK
     Route: 048

REACTIONS (4)
  - Dyspnoea [Unknown]
  - Pigmentation disorder [Recovering/Resolving]
  - Sickle cell anaemia with crisis [Recovered/Resolved]
  - Pneumonia [Recovered/Resolved]
